FAERS Safety Report 8204917-1 (Version None)
Quarter: 2012Q1

REPORT INFORMATION
  Report Type: 
  Country: None (occurrence: None)
  Receive Date: 20120313
  Receipt Date: 20120306
  Transmission Date: 20120608
  Serious: No
  Sender: FDA-Public Use
  Company Number: US-BAYER-2012-023359

PATIENT
  Age: 70 Year
  Sex: Male
  Weight: 100 kg

DRUGS (4)
  1. ASPIRIN [Concomitant]
     Dosage: 1 U, QD
     Route: 048
  2. ATENOLOL [Concomitant]
  3. SIMVASTATIN [Concomitant]
  4. ALEVE (CAPLET) [Suspect]
     Dosage: 2 U, QD
     Route: 048
     Dates: start: 20120301

REACTIONS (1)
  - LIP SWELLING [None]
